FAERS Safety Report 6806212-1 (Version None)
Quarter: 2010Q2

REPORT INFORMATION
  Report Type: 
  Country: None (occurrence: None)
  Receive Date: 20100629
  Receipt Date: 20080110
  Transmission Date: 20101027
  Serious: No
  Sender: FDA-Public Use
  Company Number: US-PFIZER INC-2008003992

PATIENT
  Sex: Female

DRUGS (3)
  1. ALDACTONE [Suspect]
     Indication: HYPERTRICHOSIS
     Dates: start: 20070101
  2. ALDACTONE [Suspect]
     Indication: HYPERTENSION
  3. LASIX [Concomitant]

REACTIONS (2)
  - LIBIDO DECREASED [None]
  - TENDERNESS [None]
